FAERS Safety Report 12970669 (Version 2)
Quarter: 2017Q1

REPORT INFORMATION
  Report Type: Spontaneous
  Country: US (occurrence: US)
  Receive Date: 20161123
  Receipt Date: 20170303
  Transmission Date: 20170428
  Serious: Yes (Hospitalization)
  Sender: FDA-Public Use
  Company Number: US-ELI_LILLY_AND_COMPANY-US201608002335

PATIENT
  Age: 48 Year
  Sex: Female
  Weight: 73 kg

DRUGS (2)
  1. CYMBALTA [Suspect]
     Active Substance: DULOXETINE HYDROCHLORIDE
     Dosage: UNK, UNKNOWN
     Route: 065
     Dates: end: 20140725
  2. CYMBALTA [Suspect]
     Active Substance: DULOXETINE HYDROCHLORIDE
     Indication: NEUROPATHY PERIPHERAL
     Dosage: UNK, UNKNOWN
     Route: 065
     Dates: start: 20120806

REACTIONS (12)
  - Dysphoria [Unknown]
  - Lethargy [Unknown]
  - Vertigo [Unknown]
  - Paraesthesia [Unknown]
  - Headache [Recovered/Resolved]
  - Drug withdrawal syndrome [Unknown]
  - Hyperhidrosis [Unknown]
  - Irritability [Unknown]
  - Dizziness [Recovered/Resolved]
  - Sensory disturbance [Unknown]
  - Agitation [Unknown]
  - Photophobia [Unknown]

NARRATIVE: CASE EVENT DATE: 20140728
